FAERS Safety Report 19880358 (Version 1)
Quarter: 2021Q3

REPORT INFORMATION
  Report Type: Spontaneous
  Country: US (occurrence: US)
  Receive Date: 20210924
  Receipt Date: 20210924
  Transmission Date: 20211014
  Serious: No
  Sender: FDA-Public Use
  Company Number: US-BAYER-2021A216148

PATIENT
  Age: 61 Year
  Sex: Female

DRUGS (2)
  1. COMIRNATY [Concomitant]
     Active Substance: TOZINAMERAN
  2. ALEVE [Suspect]
     Active Substance: NAPROXEN SODIUM
     Indication: PAIN

REACTIONS (1)
  - Drug ineffective [Unknown]
